FAERS Safety Report 8160405-2 (Version None)
Quarter: 2012Q1

REPORT INFORMATION
  Report Type: 
  Country: None (occurrence: None)
  Receive Date: 20120223
  Receipt Date: 20120216
  Transmission Date: 20120608
  Serious: Yes (Other)
  Sender: FDA-Public Use
  Company Number: US-PFIZER INC-2012045766

PATIENT
  Sex: Female

DRUGS (3)
  1. LO/OVRAL-28 [Suspect]
     Dosage: UNK
     Dates: end: 20120201
  2. LO/OVRAL-28 [Suspect]
     Indication: CONTRACEPTION
     Dosage: UNK
     Dates: start: 20120101
  3. LO/OVRAL-28 [Suspect]

REACTIONS (8)
  - CONDITION AGGRAVATED [None]
  - IRRITABLE BOWEL SYNDROME [None]
  - DIABETES MELLITUS [None]
  - WEIGHT INCREASED [None]
  - MOOD SWINGS [None]
  - VOMITING [None]
  - INCREASED APPETITE [None]
  - PREMENSTRUAL SYNDROME [None]
